FAERS Safety Report 15201159 (Version 2)
Quarter: 2018Q3

REPORT INFORMATION
  Report Type: Spontaneous
  Country: US (occurrence: US)
  Receive Date: 20180726
  Receipt Date: 20180730
  Transmission Date: 20181010
  Serious: No
  Sender: FDA-Public Use
  Company Number: US-PFIZER INC-2018297408

PATIENT
  Age: 72 Year
  Sex: Female
  Weight: 51.26 kg

DRUGS (1)
  1. COLESTIPOL HCL [Suspect]
     Active Substance: COLESTIPOL HYDROCHLORIDE
     Indication: IRRITABLE BOWEL SYNDROME
     Dosage: 1 G, 1X/DAY [60 TABLETS]
     Route: 048

REACTIONS (4)
  - Product size issue [Unknown]
  - Dysphagia [Not Recovered/Not Resolved]
  - Drug effective for unapproved indication [Unknown]
  - Foreign body in respiratory tract [Unknown]
